FAERS Safety Report 6557447-7 (Version None)
Quarter: 2010Q1

REPORT INFORMATION
  Report Type: 
  Country: None (occurrence: None)
  Receive Date: 20100129
  Receipt Date: 20100115
  Transmission Date: 20100710
  Serious: Yes (Other)
  Sender: FDA-Public Use
  Company Number: DK-ELI_LILLY_AND_COMPANY-DK200909002217

PATIENT
  Sex: Male
  Weight: 82 kg

DRUGS (6)
  1. CIALIS [Suspect]
     Indication: ERECTILE DYSFUNCTION
     Dosage: 5 MG, UNKNOWN
     Route: 048
     Dates: start: 20080101
  2. SIMVASTATIN [Concomitant]
     Dosage: UNK, UNKNOWN
     Route: 065
  3. MAGNYL [Concomitant]
     Dosage: UNK, UNKNOWN
     Route: 048
  4. EZETROL [Concomitant]
     Dosage: 10 MG, UNKNOWN
     Route: 048
  5. ANDROCUR [Concomitant]
     Dosage: UNK, UNKNOWN
     Route: 065
  6. VIAGRA [Concomitant]
     Indication: ERECTILE DYSFUNCTION
     Dosage: UNK, UNKNOWN
     Route: 065
     Dates: start: 20080101

REACTIONS (2)
  - GAIT DISTURBANCE [None]
  - INTERMITTENT CLAUDICATION [None]
